FAERS Safety Report 6163784-0 (Version None)
Quarter: 2009Q2

REPORT INFORMATION
  Report Type: 
  Country: None (occurrence: None)
  Receive Date: 20090422
  Receipt Date: 20090413
  Transmission Date: 20091009
  Serious: Yes (Hospitalization)
  Sender: FDA-Public Use
  Company Number: FR-ABBOTT-09P-056-0567748-00

PATIENT
  Age: 33 Year
  Sex: Male

DRUGS (5)
  1. LOPINAVIR [Suspect]
     Indication: ANTIRETROVIRAL THERAPY
     Dosage: NOT REPORTED
  2. ZIDOVUDINE [Suspect]
     Indication: ANTIRETROVIRAL THERAPY
     Dosage: NOT REPORTED
  3. LAMIVUDINE [Suspect]
     Indication: ANTIRETROVIRAL THERAPY
     Dosage: NOT REPORTED
  4. PYRIMETHAMINE TAB [Concomitant]
     Indication: CEREBRAL TOXOPLASMOSIS
     Dosage: NOT REPORTED
  5. SULFADIAZINE [Concomitant]
     Indication: CEREBRAL TOXOPLASMOSIS
     Dosage: NOT REPORTED

REACTIONS (3)
  - HISTIOCYTOSIS HAEMATOPHAGIC [None]
  - HISTOPLASMOSIS [None]
  - IMMUNE RECONSTITUTION SYNDROME [None]
